FAERS Safety Report 5150760-X (Version None)
Quarter: 2006Q4

REPORT INFORMATION
  Report Type: 
  Country: None (occurrence: None)
  Receive Date: 20061108
  Receipt Date: 20061026
  Transmission Date: 20070319
  Serious: Yes (Other)
  Sender: FDA-Public Use
  Company Number: 2006127414

PATIENT
  Age: 57 Year
  Sex: Female

DRUGS (3)
  1. ZYVOX [Suspect]
     Indication: PNEUMONIA STAPHYLOCOCCAL
     Dosage: 1200 MG, INTRAVENOUS
     Route: 042
     Dates: start: 20061005, end: 20061011
  2. ZYVOX [Suspect]
     Indication: PNEUMONIA STAPHYLOCOCCAL
     Dosage: 1200 MG, ORAL
     Route: 048
     Dates: start: 20061012, end: 20061018
  3. SEDIEL (TANDOSPIRONE CITRATE) [Suspect]
     Indication: DRUG USE FOR UNKNOWN INDICATION
     Dosage: 10 MG, ORAL
     Route: 048
     Dates: start: 20061005, end: 20061005

REACTIONS (3)
  - DELIRIUM [None]
  - DRUG INTERACTION [None]
  - PLATELET COUNT DECREASED [None]
